FAERS Safety Report 25728781 (Version 1)
Quarter: 2025Q3

REPORT INFORMATION
  Report Type: Spontaneous
  Country: US (occurrence: US)
  Receive Date: 20250826
  Receipt Date: 20250826
  Transmission Date: 20251020
  Serious: No
  Sender: ASCENDIS PHARMA
  Company Number: US-ASCENDIS PHARMA-2025US010073

PATIENT

DRUGS (2)
  1. YORVIPATH [Suspect]
     Active Substance: PALOPEGTERIPARATIDE
     Indication: Hypoparathyroidism
     Route: 065
     Dates: start: 20250613
  2. YORVIPATH [Suspect]
     Active Substance: PALOPEGTERIPARATIDE
     Indication: Post procedural hypothyroidism
     Route: 065
     Dates: start: 202506

REACTIONS (1)
  - Bone pain [Not Recovered/Not Resolved]

NARRATIVE: CASE EVENT DATE: 20250601
